FAERS Safety Report 9828891 (Version 1)
Quarter: 2014Q1

REPORT INFORMATION
  Report Type: Spontaneous
  Country: US (occurrence: US)
  Receive Date: 20140118
  Receipt Date: 20140118
  Transmission Date: 20141002
  Serious: Yes (Hospitalization)
  Sender: FDA-Public Use
  Company Number: US-ABBVIE-14P-163-1187710-00

PATIENT
  Age: 59 Year
  Sex: Female
  Weight: 108.96 kg

DRUGS (11)
  1. HUMIRA [Suspect]
     Indication: RHEUMATOID ARTHRITIS
     Route: 058
     Dates: start: 201305
  2. FOLIC ACID [Concomitant]
     Indication: RHEUMATOID ARTHRITIS
  3. GLIPIZIDE [Concomitant]
     Indication: DIABETES MELLITUS
  4. ISOSORBIDE [Concomitant]
     Indication: CARDIAC DISORDER
  5. METFORMIN [Concomitant]
     Indication: DIABETES MELLITUS
  6. METHOTREXATE [Concomitant]
     Indication: RHEUMATOID ARTHRITIS
  7. METOPROLOL [Concomitant]
     Indication: CARDIAC DISORDER
  8. SIMVASTATIN [Concomitant]
     Indication: BLOOD CHOLESTEROL INCREASED
  9. TRIBENZOR [Concomitant]
     Indication: HYPERTENSION
  10. PLETAL [Concomitant]
     Indication: PERIPHERAL VASCULAR DISORDER
  11. VICTOZA [Concomitant]
     Indication: DIABETES MELLITUS

REACTIONS (9)
  - Device breakage [Recovered/Resolved]
  - Ulna fracture [Recovered/Resolved]
  - Radius fracture [Recovered/Resolved]
  - Fall [Recovered/Resolved]
  - Pain in extremity [Recovered/Resolved]
  - Contusion [Recovered/Resolved]
  - Injection site pain [Not Recovered/Not Resolved]
  - Device malfunction [Unknown]
  - Drug dose omission [Unknown]
